FAERS Safety Report 9873512 (Version 2)
Quarter: 2014Q1

REPORT INFORMATION
  Report Type: Other
  Country: US (occurrence: US)
  Receive Date: 20140206
  Receipt Date: 20140206
  Transmission Date: 20141002
  Serious: No
  Sender: FDA-Public Use
  Company Number: US-ACORDA-ACO_33730_2013

PATIENT
  Sex: Female
  Weight: 81.63 kg

DRUGS (16)
  1. AMPYRA [Suspect]
     Indication: GAIT DISTURBANCE
     Dosage: 10 MG, QD
     Route: 048
     Dates: start: 2012, end: 2012
  2. AMPYRA [Suspect]
     Dosage: 10 MG, Q 12 HRS
     Route: 048
     Dates: start: 2012
  3. REBIF [Concomitant]
     Indication: PRODUCT USED FOR UNKNOWN INDICATION
     Dosage: 44 MCG, THREE TIMES PER WEEK
     Dates: start: 201104
  4. GABAPENTIN [Concomitant]
     Indication: PARAESTHESIA
     Dosage: UNK
     Dates: start: 2007
  5. GABAPENTIN [Concomitant]
     Indication: FEELING ABNORMAL
  6. BACLOFEN [Concomitant]
     Indication: MUSCLE SPASMS
     Dosage: UNK
     Dates: start: 2007
  7. DOCUSATE SODIUM [Concomitant]
     Indication: CONSTIPATION
     Dosage: 250 MG, TID
     Route: 048
  8. IBUPROFEN [Concomitant]
     Indication: BACK PAIN
     Dosage: 800 MG, TID, PRN
     Route: 048
  9. HYDROCODONE BITARTRATE AND ACETAMINOPHEN [Concomitant]
     Indication: BACK PAIN
     Dosage: 5 MG, 1-2 PRN
     Route: 048
  10. DETROL LA [Concomitant]
     Indication: URINARY INCONTINENCE
     Dosage: UNK
  11. FAMOTIDINE [Concomitant]
     Indication: GASTROOESOPHAGEAL REFLUX DISEASE
     Dosage: 20 MG, BID
     Route: 048
  12. VIVACTIL [Concomitant]
     Indication: PARAESTHESIA
     Dosage: 5 MG, BID
     Route: 048
  13. PREMARIN [Concomitant]
     Indication: HORMONE REPLACEMENT THERAPY
     Dosage: 1 UNK, QD
     Route: 048
     Dates: start: 2001
  14. SERTRALINE HCL [Concomitant]
     Indication: PRODUCT USED FOR UNKNOWN INDICATION
     Dosage: 2 DF, QD
     Route: 048
  15. VITAMIN D3 [Concomitant]
     Indication: PRODUCT USED FOR UNKNOWN INDICATION
     Dosage: 2000 IU, QD
     Route: 048
     Dates: start: 2005
  16. MULTIVITAMIN [Concomitant]
     Indication: PRODUCT USED FOR UNKNOWN INDICATION
     Dosage: UNK

REACTIONS (2)
  - Initial insomnia [Recovered/Resolved]
  - Inappropriate schedule of drug administration [Unknown]
